FAERS Safety Report 16503567 (Version 2)
Quarter: 2019Q3

REPORT INFORMATION
  Report Type: Report from Study
  Country: US (occurrence: US)
  Receive Date: 20190701
  Receipt Date: 20190807
  Transmission Date: 20191004
  Serious: Yes (Other)
  Sender: FDA-Public Use
  Company Number: US-PFIZER INC-2019202545

PATIENT
  Age: 64 Year
  Sex: Male

DRUGS (1)
  1. XELJANZ [Suspect]
     Active Substance: TOFACITINIB CITRATE
     Indication: RHEUMATOID ARTHRITIS
     Dosage: 5 MG, TWICE DAILY
     Route: 048
     Dates: start: 201902

REACTIONS (7)
  - Muscular weakness [Unknown]
  - Fatigue [Unknown]
  - Renal impairment [Unknown]
  - Arthralgia [Unknown]
  - Asthenia [Not Recovered/Not Resolved]
  - Blood pressure abnormal [Unknown]
  - Drug ineffective [Unknown]

NARRATIVE: CASE EVENT DATE: 2019
